FAERS Safety Report 4838172-7 (Version None)
Quarter: 2005Q4

REPORT INFORMATION
  Report Type: 
  Country: None (occurrence: None)
  Receive Date: 20051122
  Receipt Date: 20051110
  Transmission Date: 20060501
  Serious: Yes (Hospitalization, Other)
  Sender: FDA-Public Use
  Company Number: DE-2005-023674

PATIENT
  Sex: Female
  Weight: 130 kg

DRUGS (3)
  1. ULTRAVIST 300 [Suspect]
     Indication: COMPUTERISED TOMOGRAM ABDOMEN
     Dosage: 100 ML, 1 DOSE, INTRAVENOUS
     Route: 042
     Dates: start: 20051110, end: 20051110
  2. ANTIDEPRESSANTS [Concomitant]
  3. ANTIHYPERTENSIVES [Concomitant]

REACTIONS (7)
  - CYANOSIS [None]
  - DYSPNOEA [None]
  - FEELING HOT [None]
  - HYPERTENSIVE CRISIS [None]
  - OXYGEN SATURATION DECREASED [None]
  - PANIC ATTACK [None]
  - PULMONARY OEDEMA [None]
